FAERS Safety Report 9898789 (Version 2)
Quarter: 2014Q1

REPORT INFORMATION
  Report Type: Spontaneous
  Country: US (occurrence: US)
  Receive Date: 20140214
  Receipt Date: 20140214
  Transmission Date: 20141002
  Serious: No
  Sender: FDA-Public Use
  Company Number: US-GILEAD-2011-0044729

PATIENT
  Age: 47 Year
  Sex: Female

DRUGS (4)
  1. LETAIRIS [Suspect]
     Indication: PRODUCT USED FOR UNKNOWN INDICATION
     Dosage: 10 MG, UNK
     Route: 048
     Dates: start: 20111005
  2. REVATIO [Concomitant]
     Dosage: 10 MG, UNK
     Route: 048
  3. TRACLEER [Concomitant]
  4. REMODULIN [Concomitant]

REACTIONS (4)
  - Constipation [Unknown]
  - Sinus headache [Unknown]
  - Upper-airway cough syndrome [Unknown]
  - Oropharyngeal pain [Unknown]
